FAERS Safety Report 5002966-8 (Version None)
Quarter: 2006Q2

REPORT INFORMATION
  Report Type: 
  Country: None (occurrence: None)
  Receive Date: 20060516
  Receipt Date: 20060503
  Transmission Date: 20061013
  Serious: Yes (Death)
  Sender: FDA-Public Use
  Company Number: GB-MERCK-0605GBR00023

PATIENT
  Age: 33 Year
  Sex: Female
  Weight: 50 kg

DRUGS (2)
  1. FOSAMAX [Suspect]
     Indication: OSTEOPOROSIS
     Route: 048
     Dates: start: 20050201, end: 20051004
  2. CHOLECALCIFEROL AND CALCIUM CARBONATE [Concomitant]
     Route: 048
     Dates: start: 20050201, end: 20051004

REACTIONS (2)
  - DRUG EXPOSURE DURING PREGNANCY [None]
  - INTRA-UTERINE DEATH [None]
